FAERS Safety Report 4804942-4 (Version None)
Quarter: 2005Q4

REPORT INFORMATION
  Report Type: 
  Country: None (occurrence: None)
  Receive Date: 20051017
  Receipt Date: 20050930
  Transmission Date: 20060501
  Serious: Yes (Life-Threatening, Hospitalization, Other)
  Sender: FDA-Public Use
  Company Number: GBR-2005-0001859

PATIENT
  Age: 54 Year
  Sex: Male

DRUGS (2)
  1. MORPHINE [Suspect]
     Indication: ABDOMINAL PAIN
     Dosage: 3 GRAM, SINGLE, ORAL
     Route: 048
     Dates: start: 20050831
  2. AMITRIPTYLINE HCL [Concomitant]

REACTIONS (7)
  - DEEP VEIN THROMBOSIS [None]
  - METABOLIC ACIDOSIS [None]
  - OVERDOSE [None]
  - PNEUMONIA ASPIRATION [None]
  - PULMONARY EMBOLISM [None]
  - RENAL FAILURE [None]
  - RESPIRATORY DEPRESSION [None]
